FAERS Safety Report 10224519 (Version 1)
Quarter: 2014Q2

REPORT INFORMATION
  Report Type: Report from Study
  Country: US (occurrence: None)
  Receive Date: 20140605
  Receipt Date: 20140605
  Transmission Date: 20141212
  Serious: Yes (Hospitalization)
  Sender: FDA-Public Use
  Company Number: KAD201406-000594

PATIENT
  Age: 37 Year
  Sex: Male

DRUGS (4)
  1. RIBAVIRIN [Suspect]
     Route: 048
  2. PEGINTERFERON LAMBDA [Suspect]
     Route: 058
  3. PEGINTERFERON ALFA-2A [Suspect]
     Route: 058
  4. TELAPREVIR [Suspect]
     Route: 048

REACTIONS (6)
  - Syncope [None]
  - Confusional state [None]
  - Conjunctival haemorrhage [None]
  - Face injury [None]
  - Fall [None]
  - Platelet count decreased [None]
